FAERS Safety Report 7174202-8 (Version None)
Quarter: 2010Q4

REPORT INFORMATION
  Report Type: 
  Country: None (occurrence: None)
  Receive Date: 20101219
  Receipt Date: 20100322
  Transmission Date: 20110411
  Serious: No
  Sender: FDA-Public Use
  Company Number: US-AMGEN-QUU401316

PATIENT

DRUGS (1)
  1. ENBREL [Suspect]
     Indication: PSORIATIC ARTHROPATHY
     Dosage: 50 MG, Q2WK
     Route: 058

REACTIONS (5)
  - CELLULITIS [None]
  - EXCORIATION [None]
  - IMPAIRED HEALING [None]
  - PROCEDURAL SITE REACTION [None]
  - UPPER RESPIRATORY TRACT INFECTION [None]
